FAERS Safety Report 17674278 (Version 2)
Quarter: 2020Q2

REPORT INFORMATION
  Report Type: Spontaneous
  Country: AU (occurrence: AU)
  Receive Date: 20200416
  Receipt Date: 20200420
  Transmission Date: 20200714
  Serious: Yes (Disabling, Other)
  Sender: FDA-Public Use
  Company Number: AU-TEVA-2020-AU-1223247

PATIENT
  Sex: Female

DRUGS (3)
  1. NILOTINIB [Suspect]
     Active Substance: NILOTINIB
     Route: 065
  2. IMATINIB MESYLATE. [Suspect]
     Active Substance: IMATINIB MESYLATE
     Route: 065
  3. DASATINIB. [Suspect]
     Active Substance: DASATINIB
     Route: 065

REACTIONS (5)
  - Pain [Recovering/Resolving]
  - Disability [Recovering/Resolving]
  - Muscle spasms [Recovering/Resolving]
  - Toxicity to various agents [Recovering/Resolving]
  - Drug intolerance [Recovering/Resolving]
